FAERS Safety Report 12810638 (Version 1)
Quarter: 2016Q4

REPORT INFORMATION
  Report Type: Report from Study
  Country: DE (occurrence: DE)
  Receive Date: 20161005
  Receipt Date: 20161005
  Transmission Date: 20170207
  Serious: Yes (Hospitalization)
  Sender: FDA-Public Use
  Company Number: DE-CELGENEUS-DEU-2016095315

PATIENT
  Age: 42 Year
  Sex: Male

DRUGS (1)
  1. OTEZLA [Suspect]
     Active Substance: APREMILAST
     Indication: PSORIATIC ARTHROPATHY
     Dosage: 60 MILLIGRAM
     Route: 048
     Dates: start: 20160830, end: 20160912

REACTIONS (5)
  - Diarrhoea [Recovered/Resolved]
  - Vomiting [Unknown]
  - Nausea [Unknown]
  - Cardiovascular disorder [Recovered/Resolved]
  - Pyrexia [Unknown]

NARRATIVE: CASE EVENT DATE: 20160909
